FAERS Safety Report 8813730 (Version 2)
Quarter: 2012Q4

REPORT INFORMATION
  Report Type: Report from Study
  Country: US (occurrence: US)
  Receive Date: 20120928
  Receipt Date: 20121108
  Transmission Date: 20130627
  Serious: Yes (Other)
  Sender: FDA-Public Use
  Company Number: US-ROCHE-1131863

PATIENT
  Age: 54 Year
  Sex: Female
  Weight: 66.74 kg

DRUGS (7)
  1. TAXOTERE [Suspect]
     Indication: BREAST CANCER METASTATIC
     Route: 065
  2. BEVACIZUMAB [Suspect]
     Indication: BREAST CANCER METASTATIC
     Route: 042
     Dates: start: 20120709, end: 20120910
  3. TRASTUZUMAB [Suspect]
     Indication: BREAST CANCER METASTATIC
     Route: 065
  4. SENNA [Concomitant]
  5. DOCUSATE [Concomitant]
  6. HYDROCODONE BITARTRATE [Concomitant]
  7. GABAPENTIN [Concomitant]

REACTIONS (1)
  - Haemorrhoids [Recovered/Resolved]
